FAERS Safety Report 4358666-0 (Version None)
Quarter: 2004Q2

REPORT INFORMATION
  Report Type: 
  Country: None (occurrence: None)
  Receive Date: 20040511
  Receipt Date: 20040427
  Transmission Date: 20050107
  Serious: Yes (Disabling, Other)
  Sender: FDA-Public Use
  Company Number: RENA-11004

PATIENT
  Age: 27 Year
  Sex: Male

DRUGS (8)
  1. RENAGEL [Suspect]
     Indication: HYPERPHOSPHATAEMIA
  2. PREDNISONE [Concomitant]
  3. LANSOPRAZOLE [Concomitant]
  4. LEVOTHYROXINE SODIUM [Concomitant]
  5. PHENYTOIN [Concomitant]
  6. DOCUSATE [Concomitant]
  7. HYDROMORPHONE HYDROCHLORIDE [Concomitant]
  8. GABAPENTIN [Concomitant]

REACTIONS (9)
  - BLOOD 1,25-DIHYDROXYCHOLECALCIFEROL DECREASED [None]
  - BLOOD PHOSPHORUS INCREASED [None]
  - CALCINOSIS [None]
  - CALCIUM IONISED INCREASED [None]
  - LYMPHOCYTIC INFILTRATION [None]
  - MUSCLE CONTRACTURE [None]
  - PAIN [None]
  - SKIN FIBROSIS [None]
  - SKIN HYPERTROPHY [None]
